FAERS Safety Report 7273391-4 (Version None)
Quarter: 2011Q1

REPORT INFORMATION
  Report Type: 
  Country: None (occurrence: None)
  Receive Date: 20110203
  Receipt Date: 20101004
  Transmission Date: 20110831
  Serious: No
  Sender: FDA-Public Use
  Company Number: US-ABBOTT-10P-163-0676371-00

PATIENT
  Sex: Female
  Weight: 64.922 kg

DRUGS (2)
  1. WELLBUTRIN [Concomitant]
     Indication: PRODUCT USED FOR UNKNOWN INDICATION
     Dates: start: 19950101
  2. SYNTHROID [Suspect]
     Indication: HYPOTHYROIDISM
     Dates: start: 19950101

REACTIONS (2)
  - BLOOD THYROID STIMULATING HORMONE DECREASED [None]
  - FEELING HOT [None]
